FAERS Safety Report 4538564-X (Version None)
Quarter: 2004Q4

REPORT INFORMATION
  Report Type: 
  Country: None (occurrence: None)
  Receive Date: 20041222
  Receipt Date: 20041206
  Transmission Date: 20050328
  Serious: Yes (Death, Life-Threatening, Hospitalization)
  Sender: FDA-Public Use
  Company Number: 105480ISR

PATIENT
  Age: 78 Year
  Sex: Male

DRUGS (3)
  1. FLUOROURACIL [Suspect]
     Indication: COLON CANCER METASTATIC
     Dosage: INTRAVENOUS (NOS)
     Route: 042
     Dates: start: 20040303, end: 20040831
  2. IRINOTECAN HYDROCHLORIDE [Suspect]
     Indication: COLON CANCER METASTATIC
     Dosage: INTRAVENOUS (NOS)
     Route: 042
     Dates: start: 20040831, end: 20040831
  3. LEUCOVORIN CALCIUM [Suspect]
     Indication: COLON CANCER METASTATIC
     Dosage: INTRAVENOUS (NOS)
     Route: 042
     Dates: start: 20040303, end: 20040831

REACTIONS (11)
  - ANHEDONIA [None]
  - CONDITION AGGRAVATED [None]
  - DEHYDRATION [None]
  - DEPRESSION [None]
  - DIARRHOEA [None]
  - DISORIENTATION [None]
  - INFECTION [None]
  - NAUSEA [None]
  - NEUTROPENIA [None]
  - SEPSIS [None]
  - VOMITING [None]
